FAERS Safety Report 11227680 (Version 1)
Quarter: 2015Q2

REPORT INFORMATION
  Report Type: Spontaneous
  Country: None (occurrence: None)
  Receive Date: 20150626
  Receipt Date: 20150626
  Transmission Date: 20150821
  Serious: No
  Sender: FDA-Public Use
  Company Number: None

PATIENT
  Age: 39 Year
  Sex: Female

DRUGS (11)
  1. POTASSIUM [Concomitant]
     Active Substance: POTASSIUM
  2. MULTIVITAMIN [Concomitant]
     Active Substance: VITAMINS
  3. ADIPEX-P [Suspect]
     Active Substance: PHENTERMINE HYDROCHLORIDE
     Indication: WEIGHT CONTROL
     Dosage: 1 PILL
     Route: 048
     Dates: start: 20150427
  4. MAGNESIUM [Concomitant]
     Active Substance: MAGNESIUM
  5. VITAMIN D [Concomitant]
     Active Substance: CHOLECALCIFEROL
  6. IBUPROFEN. [Concomitant]
     Active Substance: IBUPROFEN
  7. ALLEGRA [Concomitant]
     Active Substance: FEXOFENADINE HYDROCHLORIDE
  8. BIOTIN [Concomitant]
     Active Substance: BIOTIN
  9. COLACE [Concomitant]
     Active Substance: DOCUSATE SODIUM
  10. METFORMIN [Concomitant]
     Active Substance: METFORMIN HYDROCHLORIDE
  11. FISH OIL [Concomitant]
     Active Substance: FISH OIL

REACTIONS (1)
  - Increased tendency to bruise [None]

NARRATIVE: CASE EVENT DATE: 20150427
